FAERS Safety Report 14193533 (Version 1)
Quarter: 2017Q4

REPORT INFORMATION
  Report Type: Spontaneous
  Country: US (occurrence: US)
  Receive Date: 20171115
  Receipt Date: 20171115
  Transmission Date: 20180321
  Serious: No
  Sender: FDA-Public Use
  Company Number: US-BAUSCH-BL-2017-004695

PATIENT
  Sex: Male
  Weight: 74.91 kg

DRUGS (5)
  1. DIAZEPAM. [Concomitant]
     Active Substance: DIAZEPAM
     Indication: SEIZURE
     Dosage: 3 TO 4 ML AS NEEDED
     Route: 048
  2. XENAZINE [Suspect]
     Active Substance: TETRABENAZINE
     Indication: CHOREA
     Dosage: 1 TABLET BY MOUTH IN THE MORNING
     Route: 048
     Dates: start: 201311
  3. OXTELLAR XR [Concomitant]
     Active Substance: OXCARBAZEPINE
     Indication: CEREBRAL PALSY
  4. OXTELLAR XR [Concomitant]
     Active Substance: OXCARBAZEPINE
     Indication: FOCAL DYSCOGNITIVE SEIZURES
     Route: 048
  5. XENAZINE [Suspect]
     Active Substance: TETRABENAZINE
     Dosage: 1 AND A HALF TABLETS ONCE DAILY
     Route: 048

REACTIONS (1)
  - Headache [Unknown]
